FAERS Safety Report 18131530 (Version 8)
Quarter: 2022Q1

REPORT INFORMATION
  Report Type: Other
  Country: US (occurrence: None)
  Receive Date: 20200810
  Receipt Date: 20220131
  Transmission Date: 20220423
  Serious: Yes (Hospitalization, Other)
  Sender: FDA-Public Use
  Company Number: US-ROCHE-2231450

PATIENT
  Age: 37 Year
  Sex: Female
  Weight: 113.50 kg

DRUGS (11)
  1. OCREVUS [Suspect]
     Active Substance: OCRELIZUMAB
     Indication: Relapsing-remitting multiple sclerosis
     Dosage: DATE OF TREATMENT WAS 09/JUL/2018, 23/JUL/2018, 28/JAN/2019, 26/JUL/2019, 28/JAN/2020, 10/SEP/2020.
     Route: 042
     Dates: start: 201807
  2. OCREVUS [Suspect]
     Active Substance: OCRELIZUMAB
     Route: 042
     Dates: start: 20180816
  3. OCREVUS [Suspect]
     Active Substance: OCRELIZUMAB
     Dosage: ROUTE OF ADMINISTRATION IS A PORT
     Route: 042
     Dates: start: 2017
  4. AMPYRA [Concomitant]
     Active Substance: DALFAMPRIDINE
     Dosage: ONGOING-YES
     Route: 048
     Dates: start: 201806
  5. BACLOFEN [Concomitant]
     Active Substance: BACLOFEN
     Indication: Muscle spasms
     Dosage: ONGOING-YES
     Route: 048
     Dates: start: 201806
  6. BYSTOLIC [Concomitant]
     Active Substance: NEBIVOLOL HYDROCHLORIDE
     Indication: Autonomic nervous system imbalance
     Dosage: ONGOING-YES
     Route: 048
     Dates: start: 201803
  7. VALIUM [Concomitant]
     Active Substance: DIAZEPAM
     Indication: Muscle spasms
     Dosage: YES
     Route: 048
     Dates: start: 201804
  8. FLOMAX [Concomitant]
     Active Substance: TAMSULOSIN HYDROCHLORIDE
     Indication: Urinary retention
     Dosage: YES
     Route: 048
     Dates: start: 201807
  9. SYNTHROID [Concomitant]
     Active Substance: LEVOTHYROXINE SODIUM
     Dosage: 300 MCG
     Route: 048
     Dates: start: 2000
  10. SODIUM CHLORIDE [Concomitant]
     Active Substance: SODIUM CHLORIDE
     Indication: Autonomic nervous system imbalance
     Dosage: 1000 CC
     Route: 042
     Dates: start: 2018
  11. AMPYRA [Concomitant]
     Active Substance: DALFAMPRIDINE
     Indication: Multiple sclerosis
     Route: 048
     Dates: start: 201807

REACTIONS (12)
  - Multiple sclerosis relapse [Unknown]
  - Herpes zoster [Recovered/Resolved]
  - Multiple sclerosis [Unknown]
  - Asthenia [Not Recovered/Not Resolved]
  - Fatigue [Recovered/Resolved]
  - Muscular weakness [Recovered/Resolved]
  - Abdominal discomfort [Recovered/Resolved]
  - Pruritus [Recovered/Resolved]
  - Pituitary tumour [Not Recovered/Not Resolved]
  - Urinary tract infection [Unknown]
  - Nasopharyngitis [Unknown]
  - Therapeutic response shortened [Unknown]

NARRATIVE: CASE EVENT DATE: 20180701
